FAERS Safety Report 9166231 (Version 4)
Quarter: 2013Q4

REPORT INFORMATION
  Report Type: Report from Study
  Country: CN (occurrence: CN)
  Receive Date: 20130315
  Receipt Date: 20131008
  Transmission Date: 20140711
  Serious: Yes (Hospitalization, Other)
  Sender: FDA-Public Use
  Company Number: CN-GILEAD-2013-0071519

PATIENT
  Age: 57 Year
  Sex: Male

DRUGS (4)
  1. BLINDED ADEFOVIR DIPIVOXIL [Suspect]
     Indication: HEPATITIS B
  2. BLINDED TENOFOVIR DISOPROXIL FUMARATE [Suspect]
     Indication: HEPATITIS B
  3. TENOFOVIR DISOPROXIL FUMARATE [Suspect]
     Indication: HEPATITIS B
     Dosage: UNK
     Dates: start: 20120802, end: 20130124
  4. TENOFOVIR DISOPROXIL FUMARATE [Suspect]
     Dosage: UNK
     Dates: start: 20130207

REACTIONS (1)
  - Cholangiocarcinoma [Not Recovered/Not Resolved]
